FAERS Safety Report 5381100-9 (Version None)
Quarter: 2007Q3

REPORT INFORMATION
  Report Type: 
  Country: None (occurrence: None)
  Receive Date: 20070706
  Receipt Date: 20070626
  Transmission Date: 20080115
  Serious: Yes (Death)
  Sender: FDA-Public Use
  Company Number: US-GENENTECH-243670

PATIENT
  Sex: Female
  Weight: 75.737 kg

DRUGS (2)
  1. BEVACIZUMAB [Suspect]
     Indication: SMALL CELL LUNG CANCER STAGE UNSPECIFIED
     Dosage: 762 MG, UNK
     Route: 041
     Dates: start: 20070613
  2. TAXOL [Suspect]
     Indication: SMALL CELL LUNG CANCER STAGE UNSPECIFIED
     Dosage: 90 MG/M2, DAYS 1+15
     Route: 041
     Dates: start: 20070613

REACTIONS (1)
  - BLOOD BICARBONATE INCREASED [None]
